FAERS Safety Report 12966899 (Version 2)
Quarter: 2016Q4

REPORT INFORMATION
  Report Type: Spontaneous
  Country: US (occurrence: US)
  Receive Date: 20161123
  Receipt Date: 20161125
  Transmission Date: 20170207
  Serious: Yes (Hospitalization, Other)
  Sender: FDA-Public Use
  Company Number: US-SUN PHARMACEUTICAL INDUSTRIES LTD-2016US-128100

PATIENT
  Age: 70 Year
  Sex: Male

DRUGS (1)
  1. ATORVASTATIN [Suspect]
     Active Substance: ATORVASTATIN
     Indication: PRODUCT USED FOR UNKNOWN INDICATION
     Dosage: 40 MG, DAILY
     Route: 065

REACTIONS (5)
  - Tubulointerstitial nephritis [Recovering/Resolving]
  - Weight decreased [Recovered/Resolved]
  - Renal tubular necrosis [Recovering/Resolving]
  - Drug-induced liver injury [Recovered/Resolved]
  - Fatigue [Recovering/Resolving]
